FAERS Safety Report 19658039 (Version 1)
Quarter: 2021Q3

REPORT INFORMATION
  Report Type: Report from Study
  Country: PL (occurrence: PL)
  Receive Date: 20210804
  Receipt Date: 20210804
  Transmission Date: 20211014
  Serious: Yes (Hospitalization, Other)
  Sender: FDA-Public Use
  Company Number: PL-TAKEDA-PL201401259

PATIENT
  Age: 5 Year
  Sex: Male

DRUGS (7)
  1. IDURSULFASE [Suspect]
     Active Substance: IDURSULFASE
     Indication: MUCOPOLYSACCHARIDOSIS II
     Dosage: UNK
     Route: 065
     Dates: start: 20090902
  2. CLEMASTINUM [Concomitant]
     Active Substance: CLEMASTINE FUMARATE
     Indication: PREMEDICATION
     Dosage: UNK, UNKNOWN
     Route: 065
     Dates: start: 201107, end: 201201
  3. PARACETAMOL [Concomitant]
     Active Substance: ACETAMINOPHEN
     Indication: PREMEDICATION
     Dosage: UNK
     Dates: start: 201107, end: 201201
  4. LACIDOFIL [Concomitant]
     Active Substance: PROBIOTICS NOS
     Indication: ANTIBIOTIC THERAPY
     Dosage: 1 DF, 1X/DAY:QD
     Route: 048
     Dates: start: 201110, end: 201110
  5. ACIDUM ASCORBICUM [Concomitant]
     Indication: ANTIBIOTIC THERAPY
     Dosage: UNK, 1X/DAY:QD
     Route: 061
     Dates: start: 201010, end: 201110
  6. IDURSULFASE [Suspect]
     Active Substance: IDURSULFASE
     Dosage: 0.5 MG/KG, UNKNOWN
     Route: 040
     Dates: start: 20100514
  7. IDURSULFASE [Suspect]
     Active Substance: IDURSULFASE
     Dosage: UNK, 1X/WEEK
     Route: 065
     Dates: start: 20100802, end: 20130920

REACTIONS (1)
  - Urinary tract infection pseudomonal [Recovered/Resolved]

NARRATIVE: CASE EVENT DATE: 20111001
